FAERS Safety Report 4746169-0 (Version None)
Quarter: 2005Q3

REPORT INFORMATION
  Report Type: 
  Country: None (occurrence: None)
  Receive Date: 20050816
  Receipt Date: 20050119
  Transmission Date: 20060218
  Serious: Yes (Hospitalization)
  Sender: FDA-Public Use
  Company Number: AU-MERCK-0502AUS00163

PATIENT
  Age: 63 Year
  Sex: Male

DRUGS (2)
  1. VIOXX [Suspect]
     Route: 048
     Dates: start: 20001101, end: 20041004
  2. VIOXX [Suspect]
     Route: 048
     Dates: start: 20000101

REACTIONS (1)
  - CEREBROVASCULAR ACCIDENT [None]
